FAERS Safety Report 9643722 (Version 2)
Quarter: 2013Q4

REPORT INFORMATION
  Report Type: Spontaneous
  Country: US (occurrence: US)
  Receive Date: 20131024
  Receipt Date: 20131220
  Transmission Date: 20140711
  Serious: No
  Sender: FDA-Public Use
  Company Number: US-B.I. PHARMACEUTICALS,INC./RIDGEFIELD-2013-BI-32499BP

PATIENT
  Age: 53 Year
  Sex: Female
  Weight: 130 kg

DRUGS (4)
  1. SPIRIVA [Suspect]
     Indication: BRONCHITIS CHRONIC
     Dosage: 18 MCG
     Route: 055
     Dates: start: 20130911, end: 20131009
  2. PRO AIR [Concomitant]
     Indication: BRONCHITIS CHRONIC
     Route: 055
  3. ALBUTEROL NEBULIZER [Concomitant]
     Indication: BRONCHITIS CHRONIC
     Route: 055
  4. SYMBICORT [Concomitant]
     Indication: BRONCHITIS CHRONIC
     Route: 055

REACTIONS (1)
  - Chest discomfort [Recovered/Resolved]
